FAERS Safety Report 6145386-5 (Version None)
Quarter: 2009Q2

REPORT INFORMATION
  Report Type: 
  Country: None (occurrence: None)
  Receive Date: 20090402
  Receipt Date: 20090318
  Transmission Date: 20091009
  Serious: Yes (Hospitalization)
  Sender: FDA-Public Use
  Company Number: 2008AL008715

PATIENT
  Age: 77 Year
  Sex: Female

DRUGS (21)
  1. DIGOXIN [Suspect]
     Indication: ATRIAL FIBRILLATION
     Dosage: 0.125MG, DAILY, PO
     Route: 048
  2. TRAMADOL HCL [Suspect]
     Dosage: PO
     Route: 048
  3. SPIRIVA [Concomitant]
  4. XOPENEX [Concomitant]
  5. TRIAMTERANE [Concomitant]
  6. VERAPAMIL [Concomitant]
  7. GABAPENTIN [Concomitant]
  8. SYMBICORT [Concomitant]
  9. VENTOLIN [Concomitant]
  10. ATIVAN [Concomitant]
  11. OXYCODONE HCL [Concomitant]
  12. NAPROSYN [Concomitant]
  13. TYLENOL [Concomitant]
  14. LEVOFLOXACIN [Concomitant]
  15. ALBUTEROL [Concomitant]
  16. ENOXAPARIN SODIUM [Concomitant]
  17. DARVOCET [Concomitant]
  18. NEURONTIN [Concomitant]
  19. PREVACID [Concomitant]
  20. QVAR INHALER [Concomitant]
  21. MULTI-VITAMIN [Concomitant]

REACTIONS (12)
  - ASTHENIA [None]
  - ATRIAL FIBRILLATION [None]
  - BRADYCARDIA [None]
  - CARDIAC DISORDER [None]
  - DIZZINESS [None]
  - FATIGUE [None]
  - HEART RATE IRREGULAR [None]
  - INTERNATIONAL NORMALISED RATIO INCREASED [None]
  - MALAISE [None]
  - NEUROPATHY PERIPHERAL [None]
  - PRESYNCOPE [None]
  - THERAPEUTIC AGENT TOXICITY [None]
